FAERS Safety Report 6706018-8 (Version None)
Quarter: 2010Q2

REPORT INFORMATION
  Report Type: 
  Country: None (occurrence: None)
  Receive Date: 20100503
  Receipt Date: 20100422
  Transmission Date: 20101027
  Serious: Yes (Hospitalization, Other)
  Sender: FDA-Public Use
  Company Number: BE-ASTRAZENECA-2010SE08236

PATIENT
  Age: 498 Month
  Sex: Male

DRUGS (12)
  1. SEROQUEL [Suspect]
     Indication: INSOMNIA
     Route: 048
     Dates: start: 20030101, end: 20100101
  2. SUSTANON [Concomitant]
     Indication: KLINEFELTER'S SYNDROME
     Dosage: 250 MG/ML
     Route: 030
  3. GABAPENTIN [Concomitant]
  4. SANDOZ [Concomitant]
     Dosage: 200X300 MG
     Route: 048
  5. MARCUMAR [Concomitant]
     Dosage: 0.5-0.5-0.5-0.75;  25*3 MG
  6. ZYRTEC [Concomitant]
     Dosage: 40*10 MG 1/DAY
     Route: 048
  7. ALDACTAZINE [Concomitant]
     Route: 048
  8. MAALOX FORTE [Concomitant]
     Route: 048
  9. LOPERAMIDE [Concomitant]
  10. AMOCLANE [Concomitant]
  11. IBUPROFENE [Concomitant]
     Dosage: 100X400 MG
  12. SIPRALEXA [Concomitant]

REACTIONS (6)
  - FOOT AMPUTATION [None]
  - GENERAL SYMPTOM [None]
  - METABOLIC DISORDER [None]
  - METABOLIC SYNDROME [None]
  - RASH [None]
  - TYPE 2 DIABETES MELLITUS [None]
